FAERS Safety Report 9125936 (Version 1)
Quarter: 2013Q1

REPORT INFORMATION
  Report Type: Spontaneous
  Country: US (occurrence: US)
  Receive Date: 20130228
  Receipt Date: 20130228
  Transmission Date: 20140127
  Serious: Yes (Hospitalization)
  Sender: FDA-Public Use
  Company Number: US-AMGEN-USASP2013012895

PATIENT
  Age: 70 Year
  Sex: Female

DRUGS (1)
  1. ENBREL [Suspect]
     Indication: PRODUCT USED FOR UNKNOWN INDICATION
     Dosage: 50 MG, QWK
     Route: 058

REACTIONS (6)
  - Fungal infection [Unknown]
  - Oral herpes [Unknown]
  - Infectious mononucleosis [Unknown]
  - Anaemia [Unknown]
  - Tooth abscess [Unknown]
  - Synovial rupture [Unknown]
